FAERS Safety Report 5793528-3 (Version None)
Quarter: 2008Q2

REPORT INFORMATION
  Report Type: 
  Country: None (occurrence: None)
  Receive Date: 20080627
  Receipt Date: 20080619
  Transmission Date: 20081010
  Serious: Yes (Hospitalization, Other)
  Sender: FDA-Public Use
  Company Number: PHEH2008US05540

PATIENT
  Age: 61 Year
  Sex: Female

DRUGS (4)
  1. RECLAST [Suspect]
     Indication: OSTEOPOROSIS
     Dosage: UNK
     Dates: start: 20080501
  2. PREVACID [Concomitant]
  3. SEROQUEL [Concomitant]
  4. CALCIUM [Concomitant]

REACTIONS (6)
  - APPENDICECTOMY [None]
  - BLOOD ALBUMIN DECREASED [None]
  - BLOOD IRON ABNORMAL [None]
  - HAEMOGLOBIN DECREASED [None]
  - HAEMORRHAGE [None]
  - PROTHROMBIN TIME PROLONGED [None]
